FAERS Safety Report 17617971 (Version 1)
Quarter: 2020Q2

REPORT INFORMATION
  Report Type: Spontaneous
  Country: US (occurrence: US)
  Receive Date: 20200402
  Receipt Date: 20200402
  Transmission Date: 20200713
  Serious: No
  Sender: FDA-Public Use
  Company Number: US-ROCHE-2335032

PATIENT
  Sex: Male

DRUGS (1)
  1. ERIVEDGE [Suspect]
     Active Substance: VISMODEGIB
     Indication: PRODUCT USED FOR UNKNOWN INDICATION
     Route: 065
     Dates: start: 20190401

REACTIONS (5)
  - Ageusia [Unknown]
  - Muscle tightness [Unknown]
  - Diarrhoea [Unknown]
  - Paraesthesia [Unknown]
  - Muscle disorder [Unknown]
